FAERS Safety Report 12673386 (Version 4)
Quarter: 2017Q1

REPORT INFORMATION
  Report Type: Report from Study
  Country: US (occurrence: US)
  Receive Date: 20160822
  Receipt Date: 20170228
  Transmission Date: 20170428
  Serious: Yes (Hospitalization)
  Sender: FDA-Public Use
  Company Number: US-ACTELION-A-US2016-131034

PATIENT
  Age: 59 Year
  Sex: Male
  Weight: 78.5 kg

DRUGS (5)
  1. SILDENAFIL. [Concomitant]
     Active Substance: SILDENAFIL
  2. LETAIRIS [Concomitant]
     Active Substance: AMBRISENTAN
  3. VELETRI [Suspect]
     Active Substance: EPOPROSTENOL
     Indication: PULMONARY HYPERTENSION
     Dosage: 14 NG/KG, PER MIN
     Route: 042
     Dates: start: 20151230
  4. VELETRI [Suspect]
     Active Substance: EPOPROSTENOL
     Dosage: 20 NG/KG, PER MIN
     Route: 042
  5. LASIX [Concomitant]
     Active Substance: FUROSEMIDE
     Dosage: 40 MG, BID

REACTIONS (29)
  - Central venous catheterisation [Unknown]
  - Catheter site related reaction [Unknown]
  - Skin infection [Unknown]
  - Pruritus [Unknown]
  - Catheter site inflammation [Unknown]
  - Catheter site dryness [Unknown]
  - Dyspnoea [Unknown]
  - Catheter site pruritus [Unknown]
  - Decreased appetite [Unknown]
  - Anaemia [Unknown]
  - Insomnia [Unknown]
  - Device leakage [Unknown]
  - Headache [Unknown]
  - Diarrhoea [Unknown]
  - Pain in extremity [Unknown]
  - Rash [Unknown]
  - Catheter site discharge [Unknown]
  - Device related thrombosis [Unknown]
  - Dehydration [Unknown]
  - Pain in jaw [Unknown]
  - Catheter site rash [Unknown]
  - Nausea [Unknown]
  - Pollakiuria [Unknown]
  - Skin exfoliation [Unknown]
  - Device related infection [Unknown]
  - Fatigue [Unknown]
  - Myalgia [Unknown]
  - Weight decreased [Unknown]
  - Dyspnoea exertional [Unknown]

NARRATIVE: CASE EVENT DATE: 20160809
